FAERS Safety Report 7558148-9 (Version None)
Quarter: 2011Q2

REPORT INFORMATION
  Report Type: 
  Country: None (occurrence: None)
  Receive Date: 20110620
  Receipt Date: 20110608
  Transmission Date: 20111010
  Serious: Yes (Other)
  Sender: FDA-Public Use
  Company Number: JP-SANOFI-AVENTIS-2011SA037570

PATIENT

DRUGS (3)
  1. SITAGLIPTIN PHOSPHATE [Suspect]
     Route: 065
  2. SITAGLIPTIN PHOSPHATE [Suspect]
     Route: 065
  3. GLIMEPIRIDE [Suspect]
     Dosage: THE PATIENTS WERE ON A STABLE DOSE OF 1-6 MG.
     Route: 065

REACTIONS (1)
  - ACUTE MYOCARDIAL INFARCTION [None]
